FAERS Safety Report 10533400 (Version 1)
Quarter: 2014Q4

REPORT INFORMATION
  Report Type: Spontaneous
  Country: US (occurrence: US)
  Receive Date: 20141022
  Receipt Date: 20141022
  Transmission Date: 20150529
  Serious: No
  Sender: FDA-Public Use
  Company Number: US-PFIZER INC-2014286577

PATIENT
  Age: 51 Year
  Sex: Male
  Weight: 95.24 kg

DRUGS (2)
  1. VIAGRA [Suspect]
     Active Substance: SILDENAFIL CITRATE
     Indication: MALE SEXUAL DYSFUNCTION
     Dosage: 100 MG, UNK
     Dates: start: 201410
  2. CIALIS [Concomitant]
     Active Substance: TADALAFIL
     Dosage: 20 MG, EVERY TWO WEEKS
     Dates: start: 2009

REACTIONS (1)
  - Drug ineffective [Recovered/Resolved]

NARRATIVE: CASE EVENT DATE: 20141012
